FAERS Safety Report 16145490 (Version 3)
Quarter: 2019Q2

REPORT INFORMATION
  Report Type: Spontaneous
  Country: US (occurrence: US)
  Receive Date: 20190402
  Receipt Date: 20190514
  Transmission Date: 20190711
  Serious: Yes (Other)
  Sender: FDA-Public Use
  Company Number: US-GLAXOSMITHKLINE-US2019055769

PATIENT
  Sex: Male

DRUGS (4)
  1. BENLYSTA [Suspect]
     Active Substance: BELIMUMAB
     Indication: SYSTEMIC LUPUS ERYTHEMATOSUS
     Dosage: UNK
     Route: 042
  2. BENADRYL [Concomitant]
     Active Substance: DIPHENHYDRAMINE HYDROCHLORIDE
     Indication: PRODUCT USED FOR UNKNOWN INDICATION
  3. TYLENOL [Concomitant]
     Active Substance: ACETAMINOPHEN
     Indication: PRODUCT USED FOR UNKNOWN INDICATION
  4. BENLYSTA [Suspect]
     Active Substance: BELIMUMAB
     Indication: SYSTEMIC LUPUS ERYTHEMATOSUS
     Dosage: UNK
     Route: 058

REACTIONS (11)
  - Product substitution issue [Unknown]
  - Fatigue [Unknown]
  - Pain [Unknown]
  - Drug ineffective [Unknown]
  - Nasopharyngitis [Unknown]
  - Rash [Unknown]
  - Product dose omission [Unknown]
  - Discomfort [Unknown]
  - Systemic lupus erythematosus [Unknown]
  - Impaired work ability [Unknown]
  - DNA antibody positive [Unknown]
